FAERS Safety Report 24590458 (Version 1)
Quarter: 2024Q4

REPORT INFORMATION
  Report Type: Spontaneous
  Country: US (occurrence: None)
  Receive Date: 20241107
  Receipt Date: 20241107
  Transmission Date: 20250114
  Serious: Yes (Hospitalization)
  Sender: Public
  Company Number: None

PATIENT
  Age: 69 Year
  Sex: Female
  Weight: 85.3 kg

DRUGS (4)
  1. NITROFURANTOIN MONOHYDRATE/MACROCRYSTALS (MONOHYDRATE/MACROCRYSTALS) [Suspect]
     Active Substance: NITROFURANTOIN\NITROFURANTOIN MONOHYDRATE
     Indication: Urinary tract infection
     Dosage: FREQUENCY : TWICE A DAY;?
     Route: 048
     Dates: start: 20241013, end: 20241015
  2. OZEMPIC [Suspect]
     Active Substance: SEMAGLUTIDE
     Dates: start: 20230705
  3. CIPROFLOXACIN [Suspect]
     Active Substance: CIPROFLOXACIN
  4. HYDROCHLOROTHIAZIDE [Suspect]
     Active Substance: HYDROCHLOROTHIAZIDE

REACTIONS (7)
  - Nausea [None]
  - Vomiting [None]
  - Blood sodium decreased [None]
  - Therapy cessation [None]
  - Confusional state [None]
  - Encephalopathy [None]
  - Troponin increased [None]

NARRATIVE: CASE EVENT DATE: 20241015
